FAERS Safety Report 9596085 (Version 1)
Quarter: 2013Q4

REPORT INFORMATION
  Report Type: Report from Study
  Country: JP (occurrence: JP)
  Receive Date: 20131004
  Receipt Date: 20131004
  Transmission Date: 20140711
  Serious: Yes (Other)
  Sender: FDA-Public Use
  Company Number: JP-VERTEX PHARMACEUTICALS INC-2013-010155

PATIENT
  Age: 19 Year
  Sex: Male

DRUGS (15)
  1. VX-950 (TELAPREVIR) [Suspect]
     Indication: CHRONIC HEPATITIS C
     Dosage: 2250 MG, QD
     Route: 048
     Dates: start: 20120326, end: 20120617
  2. RIBAVIRIN [Suspect]
     Indication: CHRONIC HEPATITIS C
     Dosage: 800 MG, QD
     Route: 048
     Dates: start: 20120326, end: 20120423
  3. RIBAVIRIN [Suspect]
     Dosage: 600 MG, QD
     Route: 048
     Dates: start: 20120424, end: 20120910
  4. PEGINTERFERON ALFA-2B [Suspect]
     Indication: CHRONIC HEPATITIS C
     Dosage: 1.2 ?G/KG, QW
     Route: 058
     Dates: start: 20120326, end: 20120702
  5. PEGINTERFERON ALFA-2B [Suspect]
     Dosage: 0.7 ?G/KG, QW
     Route: 058
     Dates: start: 20120709, end: 20120709
  6. PEGINTERFERON ALFA-2B [Suspect]
     Dosage: 1.1 ?G/KG, QW
     Route: 058
     Dates: start: 20120717, end: 20120717
  7. PEGINTERFERON ALFA-2B [Suspect]
     Dosage: 0.7 ?G/KG, QW
     Route: 058
     Dates: start: 20120723, end: 20120903
  8. NAUZELIN [Concomitant]
     Dosage: 30 MG, QD
     Route: 048
     Dates: start: 20120331, end: 20120910
  9. ALLEGRA [Concomitant]
     Dosage: 120 MG, QD
     Route: 048
     Dates: start: 20120507, end: 20120527
  10. ANTEBATE [Concomitant]
     Dosage: UNK
     Route: 061
     Dates: start: 20120507, end: 20120603
  11. XYZAL [Concomitant]
     Dosage: 10 MG, QD
     Route: 048
     Dates: start: 20120528, end: 20120730
  12. HIRUDOID [Concomitant]
     Dosage: 040612 UNK, UNK
     Route: 061
     Dates: start: 20120604, end: 20120617
  13. RINDERON-VG [Concomitant]
     Dosage: UNK
     Route: 061
     Dates: start: 20120606
  14. ACUATIM [Concomitant]
     Dosage: UNK
     Route: 061
     Dates: start: 20120618
  15. NERISONA [Concomitant]
     Dosage: UNK, PRN
     Route: 061
     Dates: start: 20120625, end: 20120730

REACTIONS (1)
  - Neutrophil count decreased [Recovered/Resolved]
